FAERS Safety Report 22315330 (Version 2)
Quarter: 2023Q2

REPORT INFORMATION
  Report Type: Spontaneous
  Country: US (occurrence: None)
  Receive Date: 20230512
  Receipt Date: 20230627
  Transmission Date: 20230721
  Serious: Yes (Other)
  Sender: FDA-Public Use
  Company Number: 2023A108804

PATIENT
  Age: 40 Year
  Sex: Female

DRUGS (1)
  1. TEZSPIRE [Suspect]
     Active Substance: TEZEPELUMAB-EKKO

REACTIONS (1)
  - Chest discomfort [Unknown]
